FAERS Safety Report 6449602-1 (Version None)
Quarter: 2009Q4

REPORT INFORMATION
  Report Type: 
  Country: None (occurrence: None)
  Receive Date: 20091120
  Receipt Date: 20091112
  Transmission Date: 20100525
  Serious: Yes (Hospitalization)
  Sender: FDA-Public Use
  Company Number: JP-AMGEN-US373702

PATIENT
  Sex: Male
  Weight: 46 kg

DRUGS (7)
  1. ROMIPLOSTIM [Suspect]
     Indication: IDIOPATHIC THROMBOCYTOPENIC PURPURA
     Route: 042
     Dates: start: 20080528
  2. ACTOS [Concomitant]
     Route: 048
     Dates: start: 20071114
  3. NATEGLINIDE [Concomitant]
     Route: 048
     Dates: start: 20080513
  4. MYSLEE [Concomitant]
     Route: 048
     Dates: start: 20071015
  5. VESICARE [Concomitant]
     Route: 048
     Dates: start: 20090929
  6. MAGNESIUM OXIDE [Concomitant]
     Route: 048
     Dates: start: 20030423
  7. NIZORAL [Concomitant]
     Route: 061
     Dates: start: 20091021

REACTIONS (1)
  - MOUTH HAEMORRHAGE [None]
